FAERS Safety Report 19210698 (Version 2)
Quarter: 2021Q3

REPORT INFORMATION
  Report Type: Other
  Country: AT (occurrence: AT)
  Receive Date: 20210504
  Receipt Date: 20210706
  Transmission Date: 20211014
  Serious: Yes (Death, Other)
  Sender: FDA-Public Use
  Company Number: AT-ROCHE-2818778

PATIENT
  Age: 55 Year
  Sex: Male

DRUGS (4)
  1. BELATACEPT [Suspect]
     Active Substance: BELATACEPT
     Indication: NEPHROPATHY
     Dosage: 5 MG/KG, Q6WK
     Route: 065
  2. ALEMTUZUMAB [Suspect]
     Active Substance: ALEMTUZUMAB
     Indication: IMMUNOSUPPRESSANT DRUG THERAPY
     Route: 065
  3. MYCOPHENOLATE MOFETIL. [Suspect]
     Active Substance: MYCOPHENOLATE MOFETIL
     Indication: IMMUNOSUPPRESSANT DRUG THERAPY
     Route: 065
  4. TACROLIMUS. [Suspect]
     Active Substance: TACROLIMUS
     Indication: IMMUNOSUPPRESSANT DRUG THERAPY
     Dosage: 8 NG/ML
     Route: 065

REACTIONS (14)
  - Hyperlipidaemia [Unknown]
  - Acute kidney injury [Unknown]
  - Gastric cancer [Fatal]
  - Nephropathy [Unknown]
  - Transplant rejection [Unknown]
  - Graft loss [Unknown]
  - Emphysema [Unknown]
  - Renal failure [Unknown]
  - Drug ineffective [Unknown]
  - Urosepsis [Unknown]
  - Hypertension [Unknown]
  - Skin papilloma [Unknown]
  - Enterococcal infection [Unknown]
  - Drug intolerance [Unknown]
